FAERS Safety Report 6817143-5 (Version None)
Quarter: 2010Q3

REPORT INFORMATION
  Report Type: 
  Country: None (occurrence: None)
  Receive Date: 20100706
  Receipt Date: 20100623
  Transmission Date: 20110219
  Serious: Yes (Hospitalization, Other)
  Sender: FDA-Public Use
  Company Number: US-BAYER-200942576NA

PATIENT
  Age: 21 Year
  Sex: Female
  Weight: 64 kg

DRUGS (3)
  1. YAZ [Suspect]
     Indication: CONTRACEPTION
     Dates: start: 20070101, end: 20090101
  2. CONCERTA [Concomitant]
     Dates: start: 20071201
  3. CYMBALTA [Concomitant]

REACTIONS (5)
  - ABDOMINAL PAIN UPPER [None]
  - ABDOMINAL TENDERNESS [None]
  - APHAGIA [None]
  - GALLBLADDER DISORDER [None]
  - HAEMATEMESIS [None]
